FAERS Safety Report 8291529-7 (Version None)
Quarter: 2012Q2

REPORT INFORMATION
  Report Type: 
  Country: None (occurrence: None)
  Receive Date: 20120417
  Receipt Date: 20120413
  Transmission Date: 20120825
  Serious: No
  Sender: FDA-Public Use
  Company Number: US-PFIZER INC-2012092877

PATIENT
  Sex: Male

DRUGS (3)
  1. VIAGRA [Suspect]
     Indication: LIBIDO DECREASED
     Dosage: 50MG TABLET, CUT IN HALF
  2. VIAGRA [Suspect]
     Indication: ERECTILE DYSFUNCTION
     Dosage: UNK
     Route: 048
     Dates: start: 20100101
  3. MULTI-VITAMINS [Concomitant]
     Dosage: UNK

REACTIONS (1)
  - PENIS DISORDER [None]
